FAERS Safety Report 21783845 (Version 3)
Quarter: 2023Q1

REPORT INFORMATION
  Report Type: Spontaneous
  Country: US (occurrence: US)
  Receive Date: 20221227
  Receipt Date: 20230228
  Transmission Date: 20230418
  Serious: No
  Sender: FDA-Public Use
  Company Number: US-PFIZER INC-PV202200130074

PATIENT
  Age: 55 Year
  Sex: Male

DRUGS (3)
  1. INLYTA [Suspect]
     Active Substance: AXITINIB
     Dosage: 5 MG
  2. OLMESARTAN [Concomitant]
     Active Substance: OLMESARTAN
     Indication: Blood pressure abnormal
     Dosage: UNK
  3. OLMESARTAN [Concomitant]
     Active Substance: OLMESARTAN
     Dosage: 40 MG

REACTIONS (12)
  - Diarrhoea [Unknown]
  - Abdominal discomfort [Unknown]
  - Decreased appetite [Unknown]
  - Dry skin [Unknown]
  - Nasal discomfort [Unknown]
  - Oral pain [Unknown]
  - Stomatitis [Unknown]
  - Blood pressure abnormal [Unknown]
  - Nasal dryness [Unknown]
  - Epistaxis [Unknown]
  - Product prescribing issue [Unknown]
  - Product dose omission issue [Unknown]
